FAERS Safety Report 12470623 (Version 1)
Quarter: 2016Q2

REPORT INFORMATION
  Report Type: Spontaneous
  Country: US (occurrence: None)
  Receive Date: 20160615
  Receipt Date: 20160615
  Transmission Date: 20160815
  Serious: Yes (Other)
  Sender: FDA-Public Use
  Company Number: None

PATIENT
  Age: 36 Year
  Sex: Female
  Weight: 73.03 kg

DRUGS (2)
  1. SOOLANTRA [Suspect]
     Active Substance: IVERMECTIN
     Indication: ROSACEA
     Dosage: ONCE A DAY APPLIED TO A SURFACE, USUALLY THE SKIN
     Dates: start: 20160214, end: 20160314
  2. METRONIDAZOLE. [Concomitant]
     Active Substance: METRONIDAZOLE

REACTIONS (3)
  - Condition aggravated [None]
  - Blepharitis [None]
  - Chalazion [None]

NARRATIVE: CASE EVENT DATE: 20160215
